FAERS Safety Report 4995630-2 (Version None)
Quarter: 2006Q2

REPORT INFORMATION
  Report Type: 
  Country: None (occurrence: None)
  Receive Date: 20060504
  Receipt Date: 20060421
  Transmission Date: 20061013
  Serious: Yes (Other)
  Sender: FDA-Public Use
  Company Number: 2006055017

PATIENT
  Age: 30 Year
  Sex: Female
  Weight: 81.6475 kg

DRUGS (13)
  1. DETROL LA [Suspect]
     Indication: MICTURITION URGENCY
     Dosage: 8 MG (4 MG, 2 IN 1 D), ORAL/1 YEAR AGO
     Route: 048
  2. DETROL LA [Suspect]
     Indication: URINARY RETENTION
     Dosage: 8 MG (4 MG, 2 IN 1 D), ORAL/1 YEAR AGO
     Route: 048
  3. ZANAFLEX [Suspect]
     Indication: ILL-DEFINED DISORDER
  4. MORPHINE SULFATE [Concomitant]
  5. HYDROCODONE BITARTRATE [Concomitant]
  6. MIRALAX [Concomitant]
  7. CYMBALTA [Concomitant]
  8. COMBIVENT [Concomitant]
  9. ALBUTEROL [Concomitant]
  10. ADVAIR DISKUS 100/50 [Concomitant]
  11. DEPO-PROVERA [Concomitant]
  12. NEURONTIN [Concomitant]
  13. LEXAPRO [Concomitant]

REACTIONS (7)
  - BLADDER PAIN [None]
  - BLADDER SPASM [None]
  - CONDITION AGGRAVATED [None]
  - CYSTITIS INTERSTITIAL [None]
  - DRUG INEFFECTIVE [None]
  - FIBROMYALGIA [None]
  - SLEEP DISORDER [None]
